FAERS Safety Report 10585436 (Version 4)
Quarter: 2015Q1

REPORT INFORMATION
  Report Type: Spontaneous
  Country: US (occurrence: US)
  Receive Date: 20141114
  Receipt Date: 20150209
  Transmission Date: 20150720
  Serious: No
  Sender: FDA-Public Use
  Company Number: US-GLAXOSMITHKLINE-A1087579A

PATIENT

DRUGS (6)
  1. SUMATRIPTAN SUCCINATE SOLUTION FOR INJECTION IN PRE-FILLED PEN [Suspect]
     Active Substance: SUMATRIPTAN SUCCINATE
     Dosage: UNK UNK, PRN
  2. XANAX [Concomitant]
     Active Substance: ALPRAZOLAM
  3. SUMATRIPTAN SUCCINATE SOLUTION FOR INJECTION IN PRE-FILLED PEN [Suspect]
     Active Substance: SUMATRIPTAN SUCCINATE
     Indication: MIGRAINE
     Dosage: GIVE ONE 6 MG INJECTION FOR MIGRAINES MAY REPOEAT IN ONE HOUR IF MIGRAINE PERSISTES UP TO TWO I[...]
     Dates: start: 201407
  4. DIVALPROEX [Concomitant]
     Active Substance: DIVALPROEX SODIUM
  5. NERVE MEDICATION [Concomitant]
     Active Substance: UNSPECIFIED INGREDIENT
  6. OMEPRAZOLE. [Concomitant]
     Active Substance: OMEPRAZOLE
     Route: 048

REACTIONS (5)
  - Injection site pain [Recovered/Resolved]
  - Incorrect dose administered [Unknown]
  - Needle issue [Recovered/Resolved]
  - Product quality issue [Unknown]
  - Injection site bruising [Recovering/Resolving]

NARRATIVE: CASE EVENT DATE: 201408
